FAERS Safety Report 17698794 (Version 1)
Quarter: 2020Q2

REPORT INFORMATION
  Report Type: Spontaneous
  Country: GB (occurrence: GB)
  Receive Date: 20200423
  Receipt Date: 20200423
  Transmission Date: 20200714
  Serious: Yes (Other)
  Sender: FDA-Public Use
  Company Number: NVSC2020GB108361

PATIENT
  Age: 40 Year
  Sex: Female
  Weight: 59.6 kg

DRUGS (1)
  1. ADALIMUMAB [Suspect]
     Active Substance: ADALIMUMAB
     Indication: CROHN^S DISEASE
     Dosage: 40 MG, BIW
     Route: 058

REACTIONS (2)
  - Condition aggravated [Unknown]
  - Cyst [Not Recovered/Not Resolved]
